FAERS Safety Report 5897928-2 (Version None)
Quarter: 2008Q3

REPORT INFORMATION
  Report Type: 
  Country: None (occurrence: None)
  Receive Date: 20080925
  Receipt Date: 20080922
  Transmission Date: 20090109
  Serious: Yes (Other)
  Sender: FDA-Public Use
  Company Number: JP-ASTRAZENECA-2008AP07459

PATIENT
  Age: 45 Year
  Sex: Female

DRUGS (2)
  1. TENORMIN [Suspect]
     Dosage: DOSE UNKNOWN
     Route: 048
     Dates: start: 20070501, end: 20070501
  2. MEROPEN [Suspect]
     Dosage: DOSE UNKNOWN
     Route: 041
     Dates: start: 20070501, end: 20070501

REACTIONS (1)
  - DRUG ERUPTION [None]
